FAERS Safety Report 24246313 (Version 1)
Quarter: 2024Q3

REPORT INFORMATION
  Report Type: Other
  Country: JP (occurrence: JP)
  Receive Date: 20240825
  Receipt Date: 20240825
  Transmission Date: 20241017
  Serious: Yes (Other)
  Sender: DEXCEL
  Company Number: JP-DEXPHARM-2024-2916

PATIENT
  Age: 52 Year
  Sex: Male

DRUGS (6)
  1. LANSOPRAZOLE [Interacting]
     Active Substance: LANSOPRAZOLE
     Indication: Gastrooesophageal reflux disease
  2. VONOPRAZAN [Interacting]
     Active Substance: VONOPRAZAN
     Indication: Gastrooesophageal reflux disease
  3. Aaspirin [Concomitant]
     Indication: Aortic valve replacement
  4. WARFARIN [Concomitant]
     Active Substance: WARFARIN
     Indication: Aortic valve replacement
  5. FAMOTIDINE [Suspect]
     Active Substance: FAMOTIDINE
     Indication: Dyspepsia
  6. SODIUM ALGINATE [Suspect]
     Active Substance: SODIUM ALGINATE
     Indication: Dyspepsia

REACTIONS (3)
  - Neuroendocrine tumour [Recovered/Resolved]
  - Dyspepsia [Recovered/Resolved]
  - Gastrooesophageal reflux disease [Recovered/Resolved]
